FAERS Safety Report 22093831 (Version 1)
Quarter: 2023Q1

REPORT INFORMATION
  Report Type: Spontaneous
  Country: US (occurrence: None)
  Receive Date: 20230314
  Receipt Date: 20230314
  Transmission Date: 20230418
  Serious: No
  Sender: FDA-Public Use
  Company Number: None

PATIENT
  Age: 65 Year
  Sex: Male
  Weight: 105.75 kg

DRUGS (1)
  1. NICOTINE POLACRILEX [Suspect]
     Active Substance: NICOTINE
     Indication: Smoking cessation therapy
     Dosage: OTHER QUANTITY : 24 TABLET(S);?FREQUENCY : AS NEEDED;?
     Route: 048
     Dates: start: 20230313, end: 20230313

REACTIONS (2)
  - Product outer packaging issue [None]
  - Product expiration date issue [None]

NARRATIVE: CASE EVENT DATE: 20230313
